FAERS Safety Report 6177152-9 (Version None)
Quarter: 2009Q2

REPORT INFORMATION
  Report Type: 
  Country: None (occurrence: None)
  Receive Date: 20090504
  Receipt Date: 20090422
  Transmission Date: 20091009
  Serious: Yes (Hospitalization)
  Sender: FDA-Public Use
  Company Number: US-PFIZER INC-2009201305

PATIENT
  Age: 55 Year
  Sex: Female
  Weight: 109 kg

DRUGS (13)
  1. AROMASIN [Suspect]
     Indication: BREAST CANCER METASTATIC
     Dosage: 25 MG, 1X/DAY
     Route: 048
     Dates: start: 20090313
  2. FASLODEX [Suspect]
     Indication: BREAST CANCER METASTATIC
     Dosage: 250 MG, ONCE EACH 28 DAY
     Route: 030
     Dates: start: 20090319
  3. ALBUTEROL [Concomitant]
     Dosage: UNK
     Dates: start: 19950317
  4. SYMBICORT [Concomitant]
     Dosage: UNK
     Dates: start: 20090101
  5. SINGULAIR ^DIECKMANN^ [Concomitant]
     Dosage: 10 MG, 1X/DAY
     Route: 048
     Dates: start: 20050101
  6. PRAVASTATIN SODIUM [Concomitant]
     Dosage: 40 MG, 1X/DAY
     Route: 048
     Dates: start: 20090301
  7. ZOLOFT [Concomitant]
     Dosage: 150 MG, 1X/DAY
     Route: 048
     Dates: start: 20071201
  8. LISINOPRIL [Concomitant]
     Dosage: 5 MG, 1X/DAY
     Route: 048
     Dates: start: 20080201
  9. ADVIL [Concomitant]
     Dosage: 800 MG, 1X/DAY
     Route: 048
     Dates: start: 20080401
  10. TRAMADOL [Concomitant]
     Dosage: 100 MG, 3X/DAY
     Route: 048
     Dates: start: 20090101
  11. RANITIDINE [Concomitant]
     Dosage: 150 MG, 2X/DAY
     Route: 048
     Dates: start: 20080501
  12. GLIMEPIRIDE [Concomitant]
     Dosage: 2 MG, 1X/DAY
     Route: 048
     Dates: start: 20080401
  13. VICODIN [Concomitant]
     Dosage: UNK
     Dates: start: 20090224

REACTIONS (1)
  - PULMONARY EMBOLISM [None]
